FAERS Safety Report 18812675 (Version 1)
Quarter: 2021Q1

REPORT INFORMATION
  Report Type: Spontaneous
  Country: IT (occurrence: IT)
  Receive Date: 20210131
  Receipt Date: 20210131
  Transmission Date: 20210419
  Serious: Yes (Other)
  Sender: FDA-Public Use
  Company Number: IT-UCBSA-2021002838

PATIENT
  Age: 2 Year
  Sex: Male

DRUGS (2)
  1. KEPPRA [Suspect]
     Active Substance: LEVETIRACETAM
     Indication: SEIZURE
     Dosage: INITIAL DOSE
  2. KEPPRA [Suspect]
     Active Substance: LEVETIRACETAM
     Dosage: WEANING OFF DOSE

REACTIONS (8)
  - Seizure [Unknown]
  - Dystonia [Unknown]
  - Extensor plantar response [Unknown]
  - Nystagmus [Unknown]
  - Dysmetria [Unknown]
  - Balance disorder [Unknown]
  - Hyperreflexia [Unknown]
  - Gait disturbance [Not Recovered/Not Resolved]
